FAERS Safety Report 9695150 (Version 1)
Quarter: 2013Q4

REPORT INFORMATION
  Report Type: Spontaneous
  Country: AU (occurrence: AU)
  Receive Date: 20131119
  Receipt Date: 20131119
  Transmission Date: 20140711
  Serious: Yes (Other)
  Sender: FDA-Public Use
  Company Number: AU-ABBVIE-13P-008-1158138-00

PATIENT
  Age: 47 Year
  Sex: Male

DRUGS (7)
  1. EPILIM [Suspect]
     Indication: PRODUCT USED FOR UNKNOWN INDICATION
  2. BECOTIDE [Suspect]
     Indication: PRODUCT USED FOR UNKNOWN INDICATION
  3. CLOZARIL [Suspect]
     Indication: PRODUCT USED FOR UNKNOWN INDICATION
  4. PULMICORT [Suspect]
     Indication: PRODUCT USED FOR UNKNOWN INDICATION
  5. VENTOLINE [Suspect]
     Indication: PRODUCT USED FOR UNKNOWN INDICATION
  6. AURORIX [Concomitant]
     Indication: PRODUCT USED FOR UNKNOWN INDICATION
  7. MYLANTA [Concomitant]
     Indication: PRODUCT USED FOR UNKNOWN INDICATION

REACTIONS (6)
  - Pulmonary oedema [Unknown]
  - Bronchospasm [Unknown]
  - Constipation [Unknown]
  - Cyanosis [Unknown]
  - Dyspnoea [Unknown]
  - Syncope [Unknown]
